FAERS Safety Report 5910137-3 (Version None)
Quarter: 2008Q4

REPORT INFORMATION
  Report Type: 
  Country: None (occurrence: None)
  Receive Date: 20081007
  Receipt Date: 20080926
  Transmission Date: 20090506
  Serious: Yes (Other)
  Sender: FDA-Public Use
  Company Number: GB-AMGEN-US308002

PATIENT
  Sex: Female
  Weight: 45 kg

DRUGS (4)
  1. ENBREL [Suspect]
     Indication: RHEUMATOID ARTHRITIS
     Route: 058
     Dates: start: 20040101
  2. CELECOXIB [Concomitant]
     Indication: PAIN
     Route: 048
     Dates: start: 20041001
  3. DIDRONEL PMO [Concomitant]
     Indication: OSTEOPOROSIS PROPHYLAXIS
     Dosage: STANDARD PACK
     Route: 065
  4. LEFLUNOMIDE [Concomitant]
     Indication: RHEUMATOID ARTHRITIS
     Dosage: 20MG FREQUENCY UNKNOWN
     Route: 048
     Dates: start: 20041201

REACTIONS (1)
  - IRIDOCYCLITIS [None]
